FAERS Safety Report 16749906 (Version 3)
Quarter: 2020Q1

REPORT INFORMATION
  Report Type: Report from Study
  Country: BR (occurrence: BR)
  Receive Date: 20190828
  Receipt Date: 20200116
  Transmission Date: 20200409
  Serious: Yes (Other)
  Sender: FDA-Public Use
  Company Number: PHHY2018BR199050

PATIENT
  Age: 54 Year
  Sex: Female
  Weight: 79 kg

DRUGS (5)
  1. COSENTYX [Suspect]
     Active Substance: SECUKINUMAB
     Dosage: 300 MG, UNK
     Route: 065
     Dates: start: 20190815
  2. COSENTYX [Suspect]
     Active Substance: SECUKINUMAB
     Dosage: UNK
     Route: 065
     Dates: start: 20181217
  3. COSENTYX [Suspect]
     Active Substance: SECUKINUMAB
     Indication: PSORIATIC ARTHROPATHY
     Dosage: 300 MG, QMO
     Route: 058
     Dates: start: 20180509
  4. COSENTYX [Suspect]
     Active Substance: SECUKINUMAB
     Dosage: UNK
     Route: 065
     Dates: start: 20190716
  5. COSENTYX [Suspect]
     Active Substance: SECUKINUMAB
     Dosage: UNK
     Route: 065
     Dates: start: 20190416

REACTIONS (18)
  - Tuberculosis [Unknown]
  - Decreased appetite [Unknown]
  - Influenza [Recovered/Resolved]
  - Teeth brittle [Unknown]
  - Tuberculin test positive [Unknown]
  - Tooth infection [Unknown]
  - Asthma [Unknown]
  - Wheezing [Unknown]
  - Cough [Recovered/Resolved]
  - Pulpitis dental [Unknown]
  - Pyrexia [Unknown]
  - Weight decreased [Unknown]
  - Dyspnoea [Unknown]
  - Nasopharyngitis [Recovered/Resolved]
  - Chills [Unknown]
  - Dental caries [Unknown]
  - Rhinorrhoea [Recovered/Resolved]
  - Bronchitis [Unknown]

NARRATIVE: CASE EVENT DATE: 201904
